FAERS Safety Report 18894087 (Version 1)
Quarter: 2021Q1

REPORT INFORMATION
  Report Type: Spontaneous
  Country: CN (occurrence: CN)
  Receive Date: 20210215
  Receipt Date: 20210215
  Transmission Date: 20210420
  Serious: Yes (Other)
  Sender: FDA-Public Use
  Company Number: CN-BAXTER-2021BAX002967

PATIENT
  Age: 46 Year
  Sex: Female
  Weight: 64 kg

DRUGS (4)
  1. ENDOXAN [Suspect]
     Active Substance: CYCLOPHOSPHAMIDE
     Indication: BREAST CANCER
     Dosage: DAY 1; ENDOXAN 900 MG + 0.9% SODIUM CHLORIDE 100ML, Q14D
     Route: 041
     Dates: start: 20210125, end: 20210125
  2. PIRARUBICIN HYDROCHLORIDE [Suspect]
     Active Substance: PIRARUBICIN HYDROCHLORIDE
     Indication: BREAST CANCER
     Dosage: DAY 1; PIRARUBICIN HYDROCHLORIDE 90 MG + 5% GLUCOSE 100 ML, Q14D
     Route: 041
     Dates: start: 20210125, end: 20210125
  3. 5% GLUCOSE  INJECTION [Suspect]
     Active Substance: DEXTROSE
     Indication: MEDICATION DILUTION
     Dosage: DAY 1; PIRARUBICIN HYDROCHLORIDE 90 MG + 5% GLUCOSE 100 ML, Q14D
     Route: 041
     Dates: start: 20210125, end: 20210125
  4. 0.9% SODIUM CHLORIDE INJECTION [Suspect]
     Active Substance: SODIUM CHLORIDE
     Indication: MEDICATION DILUTION
     Dosage: DAY 1; ENDOXAN 900 MG + 0.9% SODIUM CHLORIDE 100ML, Q14D
     Route: 041
     Dates: start: 20210125, end: 20210125

REACTIONS (1)
  - Myelosuppression [Recovered/Resolved]

NARRATIVE: CASE EVENT DATE: 20210204
